FAERS Safety Report 6613165-8 (Version None)
Quarter: 2010Q1

REPORT INFORMATION
  Report Type: 
  Country: None (occurrence: None)
  Receive Date: 20100225
  Receipt Date: 20100219
  Transmission Date: 20100710
  Serious: Yes (Death)
  Sender: FDA-Public Use
  Company Number: 2010SP011019

PATIENT
  Sex: Male

DRUGS (1)
  1. POSACONAZOLE [Suspect]
     Indication: PROPHYLAXIS

REACTIONS (2)
  - CEREBRAL ASPERGILLOSIS [None]
  - DRUG INEFFECTIVE [None]
